FAERS Safety Report 14354559 (Version 1)
Quarter: 2018Q1

REPORT INFORMATION
  Report Type: Spontaneous
  Country: US (occurrence: US)
  Receive Date: 20180105
  Receipt Date: 20180105
  Transmission Date: 20180509
  Serious: Yes (Other)
  Sender: FDA-Public Use
  Company Number: US-AMGEN-USASP2018000741

PATIENT
  Age: 69 Year
  Sex: Female

DRUGS (1)
  1. PROLIA [Suspect]
     Active Substance: DENOSUMAB
     Indication: OSTEOPOROSIS
     Dosage: 60 MG, Q6MO
     Route: 065

REACTIONS (10)
  - Colon cancer [Unknown]
  - Muscle injury [Unknown]
  - Ligament injury [Unknown]
  - Lung neoplasm malignant [Unknown]
  - Upper limb fracture [Unknown]
  - Anxiety [Unknown]
  - Device failure [Unknown]
  - Nightmare [Unknown]
  - Fall [Unknown]
  - Shoulder operation [Unknown]

NARRATIVE: CASE EVENT DATE: 201711
